FAERS Safety Report 5032848-7 (Version None)
Quarter: 2006Q2

REPORT INFORMATION
  Report Type: 
  Country: None (occurrence: None)
  Receive Date: 20060622
  Receipt Date: 20060619
  Transmission Date: 20061013
  Serious: Yes (Other)
  Sender: FDA-Public Use
  Company Number: US-GLAXOSMITHKLINE-A0609754A

PATIENT
  Sex: Male

DRUGS (1)
  1. FLUTICASONE PROPIONATE [Suspect]
     Route: 045

REACTIONS (5)
  - CHOKING [None]
  - COUGH [None]
  - DRUG INEFFECTIVE [None]
  - HYPERSENSITIVITY [None]
  - RHINORRHOEA [None]
